FAERS Safety Report 9323927 (Version 1)
Quarter: 2013Q2

REPORT INFORMATION
  Report Type: Spontaneous
  Country: US (occurrence: None)
  Receive Date: 20130603
  Receipt Date: 20130603
  Transmission Date: 20140414
  Serious: Yes (Hospitalization)
  Sender: FDA-Public Use
  Company Number: None

PATIENT
  Age: 19 Year
  Sex: Female

DRUGS (3)
  1. METHYLPREDNISOLONE ACETATE [Suspect]
     Indication: SINUSITIS
     Dosage: INTRA-MUSCULAR, SITE: BUTTOCK  40 MG/ML
     Route: 030
     Dates: start: 20130206
  2. METHYLPREDNISOLONE ACETATE [Suspect]
     Indication: OTITIS MEDIA
     Dosage: INTRA-MUSCULAR, SITE: BUTTOCK  40 MG/ML
     Route: 030
     Dates: start: 20130206
  3. ROCEPHIN [Suspect]
     Dosage: INTRA-MUSCULAR, SITE: BUTOCK
     Route: 030
     Dates: start: 20130206

REACTIONS (3)
  - Injection site infection [None]
  - Injection site abscess [None]
  - Nausea [None]
